FAERS Safety Report 8501227-X (Version None)
Quarter: 2012Q3

REPORT INFORMATION
  Report Type: 
  Country: None (occurrence: None)
  Receive Date: 20120710
  Receipt Date: 20120625
  Transmission Date: 20120928
  Serious: Yes (Hospitalization)
  Sender: FDA-Public Use
  Company Number: DE-WATSON-2012-11178

PATIENT
  Sex: Male
  Weight: 120 kg

DRUGS (3)
  1. PROTAPHANE [Concomitant]
     Indication: DIABETES MELLITUS
     Dosage: 32 IE INTERNATIONAL UNITS
     Route: 065
     Dates: start: 20000101
  2. RAPAFLO [Suspect]
     Indication: BENIGN PROSTATIC HYPERPLASIA
     Dosage: 8 MG, DAILY
     Route: 048
     Dates: start: 20120405, end: 20120618
  3. ACTRAPID                           /00646001/ [Concomitant]
     Indication: DIABETES MELLITUS
     Dosage: UNK
     Route: 065
     Dates: start: 20000101

REACTIONS (1)
  - CEREBROVASCULAR ACCIDENT [None]
